APPROVED DRUG PRODUCT: HYDROXYUREA
Active Ingredient: HYDROXYUREA
Strength: 1GM
Dosage Form/Route: TABLET;ORAL
Application: A075734 | Product #001
Applicant: BARR LABORATORIES INC
Approved: Aug 29, 2000 | RLD: No | RS: No | Type: DISCN